FAERS Safety Report 20376891 (Version 2)
Quarter: 2022Q1

REPORT INFORMATION
  Report Type: Spontaneous
  Country: US (occurrence: US)
  Receive Date: 20220125
  Receipt Date: 20220125
  Transmission Date: 20220423
  Serious: Yes (Other)
  Sender: FDA-Public Use
  Company Number: US-CELGENE-USA-20220105337

PATIENT
  Age: 59 Year
  Sex: Female
  Weight: 67.192 kg

DRUGS (1)
  1. REVLIMID [Suspect]
     Active Substance: LENALIDOMIDE
     Indication: Plasma cell myeloma
     Dosage: 25 MILLIGRAM
     Route: 048
     Dates: start: 20210420

REACTIONS (3)
  - Breast cancer [Unknown]
  - Mastitis [Unknown]
  - Headache [Unknown]

NARRATIVE: CASE EVENT DATE: 20210401
